FAERS Safety Report 4751117-3 (Version None)
Quarter: 2005Q3

REPORT INFORMATION
  Report Type: 
  Country: None (occurrence: None)
  Receive Date: 20050823
  Receipt Date: 20050808
  Transmission Date: 20060218
  Serious: Yes (Other)
  Sender: FDA-Public Use
  Company Number: 2005S1006374

PATIENT
  Age: 25 Year
  Sex: Female

DRUGS (3)
  1. FENTANYL [Suspect]
     Indication: FIBROMYALGIA
     Dosage: 75 MCG/HR; Q3D; TDER
     Route: 062
     Dates: start: 20050625
  2. PARACETAMOL/OXYCODONE HYDROCHLORIDE [Concomitant]
  3. DOCUSATE SODIUM [Concomitant]

REACTIONS (6)
  - CARDIAC DISORDER [None]
  - CONVULSION [None]
  - DRUG EFFECT DECREASED [None]
  - DRUG LEVEL INCREASED [None]
  - DRUG WITHDRAWAL SYNDROME [None]
  - PHARMACEUTICAL PRODUCT COMPLAINT [None]
